FAERS Safety Report 9410563 (Version 1)
Quarter: 2013Q3

REPORT INFORMATION
  Report Type: Report from Study
  Country: CA (occurrence: CA)
  Receive Date: 20130719
  Receipt Date: 20130719
  Transmission Date: 20140515
  Serious: Yes (Other)
  Sender: FDA-Public Use
  Company Number: CA-JNJFOC-20130709594

PATIENT
  Age: 56 Year
  Sex: Female
  Weight: 67.13 kg

DRUGS (7)
  1. REMICADE [Suspect]
     Indication: CROHN^S DISEASE
     Route: 042
     Dates: start: 20130527
  2. REMICADE [Suspect]
     Indication: CROHN^S DISEASE
     Route: 042
     Dates: start: 20120827
  3. OXYCODONE [Concomitant]
     Indication: PAIN
     Dosage: START DATE: APPROXIMATELY 2 YEARS AGO.
     Route: 065
  4. METHOTREXATE [Concomitant]
     Dosage: 6 OF 2.5 MG PILLS ON SUNDAY ONLY
     Route: 065
  5. FOLIC ACID [Concomitant]
     Route: 065
  6. PERCOCET [Concomitant]
     Indication: PAIN
     Route: 065
  7. PERCOCET [Concomitant]
     Indication: PAIN
     Route: 065

REACTIONS (5)
  - Ligament rupture [Unknown]
  - Spondylitis [Unknown]
  - Gait disturbance [Unknown]
  - Headache [Unknown]
  - Insomnia [Unknown]
